FAERS Safety Report 24908138 (Version 1)
Quarter: 2025Q1

REPORT INFORMATION
  Report Type: Spontaneous
  Country: US (occurrence: US)
  Receive Date: 20250131
  Receipt Date: 20250131
  Transmission Date: 20250409
  Serious: No
  Sender: STALLERGENES
  Company Number: US-STALCOR-2024-AER-02813

PATIENT
  Sex: Male

DRUGS (1)
  1. PALFORZIA [Suspect]
     Active Substance: PEANUT
     Indication: Food allergy
     Dosage: 20MG: LVL4: MIX CONTENTS OF CAPSULES WELL WITH SEMISOLID FOOD AS DIRECTED AND CONSUME ONCE DAILY AT
     Route: 048
     Dates: start: 202411

REACTIONS (3)
  - Viral infection [Recovered/Resolved]
  - Pyrexia [Recovered/Resolved]
  - Product dose omission issue [Recovered/Resolved]
